FAERS Safety Report 15130421 (Version 1)
Quarter: 2018Q3

REPORT INFORMATION
  Report Type: Spontaneous
  Country: US (occurrence: US)
  Receive Date: 20180711
  Receipt Date: 20180711
  Transmission Date: 20181010
  Serious: No
  Sender: FDA-Public Use
  Company Number: US-HORIZON-DUE-VIM-0249-2018

PATIENT
  Age: 53 Year
  Sex: Female

DRUGS (2)
  1. VIMOVO [Suspect]
     Active Substance: ESOMEPRAZOLE MAGNESIUM\NAPROXEN
     Indication: TENDON INJURY
     Dosage: 1 TAB BID
     Dates: start: 20180618, end: 20180619
  2. DUEXIS [Suspect]
     Active Substance: FAMOTIDINE\IBUPROFEN
     Indication: PRODUCT USED FOR UNKNOWN INDICATION
     Dosage: 1 TAB BID

REACTIONS (4)
  - Expired product administered [Unknown]
  - Urticaria [Unknown]
  - Cough [Unknown]
  - Off label use [Unknown]
